FAERS Safety Report 9489642 (Version 2)
Quarter: 2014Q2

REPORT INFORMATION
  Report Type: Spontaneous
  Country: US (occurrence: US)
  Receive Date: 20130829
  Receipt Date: 20140411
  Transmission Date: 20141212
  Serious: Yes (Death, Hospitalization)
  Sender: FDA-Public Use
  Company Number: US-B.I. PHARMACEUTICALS,INC./RIDGEFIELD-2013-BI-26672BP

PATIENT
  Age: 81 Year
  Sex: Male
  Weight: 69 kg

DRUGS (15)
  1. PRADAXA [Suspect]
     Indication: ANTICOAGULANT THERAPY
     Route: 065
     Dates: start: 20120212, end: 201204
  2. AMBIEN [Concomitant]
     Route: 065
  3. HYTRIN [Concomitant]
     Route: 065
  4. FLUTICASONE [Concomitant]
     Route: 065
  5. METOPROLOL [Concomitant]
     Route: 065
  6. LISINOPRIL [Concomitant]
     Route: 065
  7. SIMVASTATIN [Concomitant]
     Route: 065
  8. TAMSULOSIN [Concomitant]
     Route: 065
  9. FINASTERIDE [Concomitant]
     Route: 065
  10. ESOMEPRAZOLE [Concomitant]
     Route: 065
  11. CHOLECALCIFEROL [Concomitant]
     Route: 065
  12. NITROGLYCERIN [Concomitant]
     Route: 065
  13. ASPIRIN [Concomitant]
     Route: 065
  14. EPA FISH OIL [Concomitant]
     Route: 065
  15. MULTIVITAMIN [Concomitant]
     Route: 065

REACTIONS (5)
  - Multi-organ failure [Fatal]
  - Mesenteric artery thrombosis [Fatal]
  - Gastrointestinal necrosis [Fatal]
  - Haemorrhage intracranial [Unknown]
  - Gastrointestinal haemorrhage [Unknown]
